FAERS Safety Report 5262175-4 (Version None)
Quarter: 2007Q1

REPORT INFORMATION
  Report Type: 
  Country: None (occurrence: None)
  Receive Date: 20070311
  Receipt Date: 20070228
  Transmission Date: 20070707
  Serious: No
  Sender: FDA-Public Use
  Company Number: 2006UW08460

PATIENT
  Sex: Female
  Weight: 86.4 kg

DRUGS (3)
  1. SEROQUEL [Suspect]
     Indication: BIPOLAR DISORDER
     Route: 048
     Dates: start: 20000101
  2. RISPERIDONE [Concomitant]
  3. BUSPAR [Concomitant]

REACTIONS (5)
  - BLOOD CHOLESTEROL INCREASED [None]
  - BLOOD TRIGLYCERIDES INCREASED [None]
  - CHRONIC OBSTRUCTIVE PULMONARY DISEASE [None]
  - DIABETES MELLITUS [None]
  - WEIGHT INCREASED [None]
